FAERS Safety Report 7318348-X (Version None)
Quarter: 2011Q1

REPORT INFORMATION
  Report Type: 
  Country: None (occurrence: None)
  Receive Date: 20110218
  Receipt Date: 20110218
  Transmission Date: 20110831
  Serious: Yes (Hospitalization)
  Sender: FDA-Public Use
  Company Number: None

PATIENT
  Age: 46 Year
  Sex: Male
  Weight: 95.6183 kg

DRUGS (15)
  1. REMICADE [Concomitant]
  2. LEVAQUIN [Suspect]
     Indication: BRONCHITIS
     Dosage: RECENT
  3. PERCOCET [Concomitant]
  4. SALMETEROL [Concomitant]
  5. AZITHROMYCIN [Concomitant]
  6. OXYCONTIN [Concomitant]
  7. NEXIUM [Concomitant]
  8. AZITHROMYCIN [Suspect]
     Dosage: RECENT
  9. RHYTHMOL [Concomitant]
  10. PRAVACHOL [Concomitant]
  11. VIT D [Concomitant]
  12. TUMS [Concomitant]
  13. COUMADIN [Suspect]
     Indication: DEEP VEIN THROMBOSIS
     Dosage: 2MG DAILY PO CHRONIC
     Route: 048
  14. TOPROL-XL [Concomitant]
  15. LEVAQUIN [Concomitant]

REACTIONS (4)
  - DRUG INTERACTION [None]
  - EPISTAXIS [None]
  - COAGULOPATHY [None]
  - HAEMATOCHEZIA [None]
